FAERS Safety Report 5922274-8 (Version None)
Quarter: 2008Q4

REPORT INFORMATION
  Report Type: 
  Country: None (occurrence: None)
  Receive Date: 20081015
  Receipt Date: 20080929
  Transmission Date: 20090506
  Serious: Yes (Other)
  Sender: FDA-Public Use
  Company Number: 230643J08USA

PATIENT
  Age: 28 Year
  Sex: Female
  Weight: 64 kg

DRUGS (6)
  1. REBIF [Suspect]
     Indication: MULTIPLE SCLEROSIS
     Dosage: 44 MCG, 3 IN 1 WEEKS, SUBCUTANEOUS
     Route: 058
     Dates: start: 20061001, end: 20070901
  2. REBIF [Suspect]
     Indication: MULTIPLE SCLEROSIS
     Dosage: 44 MCG, 3 IN 1 WEEKS, SUBCUTANEOUS
     Route: 058
     Dates: start: 20071213
  3. BIRTH CONTROL PILLS (ORAL CONTRACEPTIVE NOS) [Concomitant]
  4. AMANTADINE HCL [Concomitant]
  5. WELLBUTRIN [Concomitant]
  6. NORTRIPTYLINE (NORTRIPTYLINE /00006501/) [Concomitant]

REACTIONS (5)
  - AMNESIA [None]
  - EYE ROLLING [None]
  - FATIGUE [None]
  - LOSS OF CONSCIOUSNESS [None]
  - RESPIRATORY ARREST [None]
